FAERS Safety Report 22061230 (Version 2)
Quarter: 2023Q2

REPORT INFORMATION
  Report Type: Spontaneous
  Country: JP (occurrence: JP)
  Receive Date: 20230303
  Receipt Date: 20230413
  Transmission Date: 20230721
  Serious: Yes (Death, Life-Threatening, Hospitalization, Other)
  Sender: FDA-Public Use
  Company Number: JP-ONO-2023JP001794

PATIENT
  Age: 75 Year
  Sex: Male
  Weight: 48 kg

DRUGS (11)
  1. EMEND [Suspect]
     Active Substance: APREPITANT
     Indication: Prophylaxis of nausea and vomiting
     Dosage: 80 MG, EVERYDAY
     Route: 048
     Dates: start: 20220606, end: 20221130
  2. OPDIVO [Suspect]
     Active Substance: NIVOLUMAB
     Indication: Gastric cancer
     Dosage: 360 MG
     Route: 041
     Dates: start: 20220912, end: 20221128
  3. OXALIPLATIN [Concomitant]
     Active Substance: OXALIPLATIN
     Indication: Gastric cancer
     Dosage: 120 MG
     Route: 041
     Dates: start: 20220606, end: 20221128
  4. TS-1 [Concomitant]
     Active Substance: GIMERACIL\OTERACIL\TEGAFUR
     Indication: Gastric cancer
     Dosage: 50 MG, Q12H
     Route: 048
     Dates: start: 20220606
  5. ALOXI [Concomitant]
     Active Substance: PALONOSETRON HYDROCHLORIDE
     Indication: Prophylaxis
     Dosage: 0.75 MG, EVERYDAY
     Route: 041
     Dates: start: 20220606, end: 20221128
  6. DEXAMETHASONE SODIUM PHOSPHATE [Concomitant]
     Active Substance: DEXAMETHASONE SODIUM PHOSPHATE
     Indication: Prophylaxis
     Dosage: 3.3 MG, EVERYDAY
     Route: 041
     Dates: start: 20220606, end: 20221128
  7. DECADRON [Concomitant]
     Active Substance: DEXAMETHASONE
     Dosage: 4 MG, EVERYDAY
     Route: 048
     Dates: start: 20220606, end: 20221130
  8. NEXIUM [Concomitant]
     Active Substance: ESOMEPRAZOLE MAGNESIUM
     Dosage: 20 MG, EVERYDAY
     Route: 048
     Dates: start: 20220606
  9. AMITIZA [Concomitant]
     Active Substance: LUBIPROSTONE
     Dosage: 24 UG, Q12H
     Route: 048
     Dates: start: 20220606
  10. MIYA-BM [Concomitant]
     Active Substance: CLOSTRIDIUM BUTYRICUM SPORES STRAIN M-55
     Dosage: 2 DF, Q8H
     Route: 048
     Dates: start: 20220606
  11. CELECOXIB [Concomitant]
     Active Substance: CELECOXIB
     Dosage: 200 MG, Q12H
     Route: 048
     Dates: start: 20220606

REACTIONS (2)
  - Subdural abscess [Fatal]
  - Pyelonephritis acute [Fatal]

NARRATIVE: CASE EVENT DATE: 20221202
